FAERS Safety Report 4283371-9 (Version None)
Quarter: 2004Q1

REPORT INFORMATION
  Report Type: 
  Country: None (occurrence: None)
  Receive Date: 20040202
  Receipt Date: 20040126
  Transmission Date: 20041129
  Serious: Yes (Life-Threatening, Hospitalization)
  Sender: FDA-Public Use
  Company Number: PHBS2004IT01386

PATIENT
  Age: 32 Year
  Sex: Male

DRUGS (3)
  1. LEPONEX [Suspect]
     Indication: SCHIZOTYPAL PERSONALITY DISORDER
     Dosage: 100 MG, BID
     Route: 048
     Dates: start: 19960901
  2. SEREUPIN [Concomitant]
     Dosage: 20 MG/D
     Route: 065
  3. CONTROL [Concomitant]
     Dosage: 2.5 MG/D
     Route: 065

REACTIONS (2)
  - PANCREATIC HAEMORRHAGE [None]
  - PANCREATITIS NECROTISING [None]
